FAERS Safety Report 8059011-X (Version None)
Quarter: 2012Q1

REPORT INFORMATION
  Report Type: 
  Country: None (occurrence: None)
  Receive Date: 20120120
  Receipt Date: 20110324
  Transmission Date: 20120608
  Serious: No
  Sender: FDA-Public Use
  Company Number: US-BAUSCH-2011BL001955

PATIENT
  Age: 68 Year
  Sex: Male

DRUGS (3)
  1. OCUSOFT LID SCRUB [Concomitant]
  2. ALAWAY [Suspect]
     Route: 047
     Dates: start: 20110324, end: 20110324
  3. ALAWAY [Suspect]
     Indication: DRY EYE
     Route: 047
     Dates: start: 20110321, end: 20110321

REACTIONS (4)
  - PAIN IN EXTREMITY [None]
  - DRUG HYPERSENSITIVITY [None]
  - PARAESTHESIA [None]
  - HYPOAESTHESIA [None]
